FAERS Safety Report 16493909 (Version 1)
Quarter: 2019Q2

REPORT INFORMATION
  Report Type: Spontaneous
  Country: IL (occurrence: IL)
  Receive Date: 20190628
  Receipt Date: 20190628
  Transmission Date: 20190711
  Serious: Yes (Other)
  Sender: FDA-Public Use
  Company Number: IL-ENDO PHARMACEUTICALS INC-2019-105971

PATIENT
  Age: 30 Year
  Sex: Male

DRUGS (1)
  1. COLCHICINE. [Suspect]
     Active Substance: COLCHICINE
     Indication: FAMILIAL MEDITERRANEAN FEVER
     Dosage: UNK UNKNOWN, UNKNOWN
     Route: 065

REACTIONS (5)
  - Corneal perforation [Recovered/Resolved]
  - Iridocele [Recovered/Resolved]
  - Keratoconus [Recovered/Resolved]
  - Off label use [Unknown]
  - Disease complication [Recovered/Resolved]
